FAERS Safety Report 10227215 (Version 1)
Quarter: 2014Q2

REPORT INFORMATION
  Report Type: Spontaneous
  Country: KR (occurrence: KR)
  Receive Date: 20140610
  Receipt Date: 20140610
  Transmission Date: 20141212
  Serious: Yes (Other)
  Sender: FDA-Public Use
  Company Number: KR-JNJFOC-20140517028

PATIENT
  Age: 72 Year
  Sex: Male

DRUGS (2)
  1. ZYTIGA [Suspect]
     Indication: PROSTATE CANCER METASTATIC
     Route: 048
     Dates: start: 20130219
  2. PREDNISOLONE [Concomitant]
     Indication: PROSTATE CANCER METASTATIC
     Route: 065
     Dates: start: 20120710

REACTIONS (6)
  - Pneumonia [Unknown]
  - Respiratory failure [Unknown]
  - Bone marrow failure [Unknown]
  - Quality of life decreased [Not Recovered/Not Resolved]
  - Blood alkaline phosphatase increased [Recovering/Resolving]
  - Pain [Not Recovered/Not Resolved]
